FAERS Safety Report 13345078 (Version 4)
Quarter: 2017Q3

REPORT INFORMATION
  Report Type: Spontaneous
  Country: US (occurrence: US)
  Receive Date: 20170317
  Receipt Date: 20170712
  Transmission Date: 20171127
  Serious: No
  Sender: FDA-Public Use
  Company Number: US-PFIZER INC-2017109071

PATIENT
  Age: 65 Year
  Sex: Female

DRUGS (3)
  1. LETROZOLE. [Suspect]
     Active Substance: LETROZOLE
     Dosage: UNK
     Dates: start: 20170227
  2. IBRANCE [Suspect]
     Active Substance: PALBOCICLIB
     Dosage: 125 MG, UNK
     Dates: start: 20170227
  3. IBRANCE [Suspect]
     Active Substance: PALBOCICLIB
     Dosage: 100 MG, UNK

REACTIONS (9)
  - Dysgeusia [Unknown]
  - Feeling cold [Unknown]
  - Abdominal distension [Recovering/Resolving]
  - Lip dry [Unknown]
  - Anaemia [Unknown]
  - Joint swelling [Unknown]
  - Alopecia [Unknown]
  - Peripheral swelling [Unknown]
  - Fatigue [Unknown]
